FAERS Safety Report 10901738 (Version 2)
Quarter: 2015Q2

REPORT INFORMATION
  Report Type: Report from Study
  Country: US (occurrence: US)
  Receive Date: 20150310
  Receipt Date: 20150508
  Transmission Date: 20150821
  Serious: Yes (Other)
  Sender: FDA-Public Use
  Company Number: US-CELGENE-USA-2015030078

PATIENT
  Age: 72 Year
  Sex: Female
  Weight: 59.3 kg

DRUGS (2)
  1. AZACITIDINE INJECTABLE [Suspect]
     Active Substance: AZACITIDINE
     Route: 058
     Dates: start: 20140702, end: 20140708
  2. AZACITIDINE INJECTABLE [Suspect]
     Active Substance: AZACITIDINE
     Indication: ACUTE MYELOID LEUKAEMIA
     Route: 058
     Dates: start: 20140117, end: 20140724

REACTIONS (1)
  - Vulval cancer stage 0 [Not Recovered/Not Resolved]

NARRATIVE: CASE EVENT DATE: 201407
